FAERS Safety Report 25468240 (Version 1)
Quarter: 2025Q2

REPORT INFORMATION
  Report Type: Spontaneous
  Country: US (occurrence: None)
  Receive Date: 20250620
  Receipt Date: 20250620
  Transmission Date: 20250717
  Serious: Yes (Other)
  Sender: FDA-CTU
  Company Number: None

PATIENT
  Age: 64 Year
  Sex: Male
  Weight: 81 kg

DRUGS (23)
  1. ZERBAXA [Suspect]
     Active Substance: CEFTOLOZANE SULFATE\TAZOBACTAM SODIUM
     Indication: Urinary tract infection
     Dosage: FREQUENCY : 3 TIMES A DAY;?
     Route: 042
     Dates: start: 20250614, end: 20250618
  2. ACETAMINOPHEN [Concomitant]
     Active Substance: ACETAMINOPHEN
     Dates: start: 20250606, end: 20250619
  3. DUONEB [Concomitant]
     Active Substance: ALBUTEROL SULFATE\IPRATROPIUM BROMIDE
     Dates: start: 20250614
  4. apixaban (home med) [Concomitant]
     Dates: start: 20250607
  5. baclofen (home med) [Concomitant]
     Dates: start: 20250607
  6. buprenorphine (home med) [Concomitant]
     Dates: start: 20250607
  7. gabapentin (home med) [Concomitant]
     Dates: start: 20250607
  8. insulin glargine (home med) [Concomitant]
     Dates: start: 20250607
  9. insulin regular (home med) [Concomitant]
     Dates: start: 20250607
  10. MELATONIN [Concomitant]
     Active Substance: MELATONIN
     Dates: start: 20250606
  11. BUMETANIDE [Concomitant]
     Active Substance: BUMETANIDE
     Dates: start: 20250614, end: 20250614
  12. CALCIUM CHLORIDE [Concomitant]
     Active Substance: CALCIUM CHLORIDE
  13. CEFEPIME [Concomitant]
     Active Substance: CEFEPIME HYDROCHLORIDE
     Dates: start: 20250606, end: 20250608
  14. ZERBAXA [Concomitant]
     Active Substance: CEFTOLOZANE SULFATE\TAZOBACTAM SODIUM
     Dates: start: 20250614, end: 20250618
  15. PRECEDEX [Concomitant]
     Active Substance: DEXMEDETOMIDINE HYDROCHLORIDE
     Dates: start: 20250612, end: 20250619
  16. FENTANYL [Concomitant]
     Active Substance: FENTANYL
     Dates: start: 20250610, end: 20250618
  17. MEROPENEM [Concomitant]
     Active Substance: MEROPENEM
     Dates: start: 20250608, end: 20250614
  18. oxycodone PRN (home med) [Concomitant]
     Dates: start: 20250607
  19. MIRALAX [Concomitant]
     Active Substance: POLYETHYLENE GLYCOL 3350
     Dates: start: 20250606
  20. PROPOFOL [Concomitant]
     Active Substance: PROPOFOL
     Dates: start: 20250610, end: 20250618
  21. QUETIAPINE [Concomitant]
     Active Substance: QUETIAPINE
     Dates: start: 20250613
  22. VANCOMYCIN [Concomitant]
     Active Substance: VANCOMYCIN
     Dates: start: 20250608, end: 20250617
  23. MEROPENEM [Suspect]
     Active Substance: MEROPENEM

REACTIONS (4)
  - Hyperkalaemia [None]
  - Agitation [None]
  - Encephalopathy [None]
  - Aspiration [None]

NARRATIVE: CASE EVENT DATE: 20250615
